FAERS Safety Report 14362994 (Version 1)
Quarter: 2018Q1

REPORT INFORMATION
  Report Type: Spontaneous
  Country: US (occurrence: US)
  Receive Date: 20180108
  Receipt Date: 20180108
  Transmission Date: 20180509
  Serious: No
  Sender: FDA-Public Use
  Company Number: US-DEXPHARM-20170848

PATIENT
  Age: 70 Year
  Sex: Female
  Weight: 68.03 kg

DRUGS (4)
  1. OMEPRAZOLE DELAYED RELEASE TABLETS 20 MG WILDBERRY MINT [Suspect]
     Active Substance: OMEPRAZOLE
     Indication: GASTROOESOPHAGEAL REFLUX DISEASE
     Dosage: 20 MG, SINGLE
     Route: 048
     Dates: start: 20170523, end: 20170523
  2. OMEPRAZOLE DELAYED RELEASE TABLETS 20 MG WILDBERRY MINT [Suspect]
     Active Substance: OMEPRAZOLE
     Indication: GASTROOESOPHAGEAL REFLUX DISEASE
     Dosage: 20 MG, SINGLE
     Route: 048
     Dates: start: 20170525, end: 20170525
  3. ESTRADIOL. [Concomitant]
     Active Substance: ESTRADIOL
     Indication: MENOPAUSE
     Dates: start: 1974
  4. ZYRTEC [Concomitant]
     Active Substance: CETIRIZINE HYDROCHLORIDE
     Indication: PERENNIAL ALLERGY
     Route: 048
     Dates: start: 1997

REACTIONS (2)
  - Throat irritation [Unknown]
  - Oral discomfort [Recovered/Resolved]

NARRATIVE: CASE EVENT DATE: 20170523
